FAERS Safety Report 23976908 (Version 1)
Quarter: 2024Q2

REPORT INFORMATION
  Report Type: Report from Study
  Country: UZ (occurrence: UZ)
  Receive Date: 20240614
  Receipt Date: 20240614
  Transmission Date: 20240716
  Serious: Yes (Death, Other)
  Sender: FDA-Public Use
  Company Number: UZ-MYLANLABS-2024M1054307

PATIENT
  Sex: Female
  Weight: 40 kg

DRUGS (6)
  1. MOXIFLOXACIN [Suspect]
     Active Substance: MOXIFLOXACIN
     Indication: Pulmonary tuberculosis
     Dosage: UNK (400)
     Route: 065
     Dates: start: 20231205, end: 20240308
  2. PRETOMANID [Suspect]
     Active Substance: PRETOMANID
     Indication: Pulmonary tuberculosis
     Dosage: UNK (200)
     Route: 065
     Dates: start: 20231220, end: 20240308
  3. BEDAQUILINE [Suspect]
     Active Substance: BEDAQUILINE
     Indication: Pulmonary tuberculosis
     Dosage: UNK (400)
     Route: 065
     Dates: start: 20231205, end: 20231219
  4. BEDAQUILINE [Suspect]
     Active Substance: BEDAQUILINE
     Dosage: UNK (200)
     Route: 065
     Dates: start: 20231220, end: 20240308
  5. LINEZOLID [Suspect]
     Active Substance: LINEZOLID
     Indication: Pulmonary tuberculosis
     Dosage: UNK (600)
     Route: 065
     Dates: start: 20231205, end: 20240308
  6. CLOFAZIMINE [Suspect]
     Active Substance: CLOFAZIMINE
     Indication: Pulmonary tuberculosis
     Dosage: UNK (100)
     Route: 065
     Dates: start: 20231205, end: 20231220

REACTIONS (12)
  - Cardiac failure [Fatal]
  - Peptic ulcer [Unknown]
  - Haematemesis [Unknown]
  - Discomfort [Unknown]
  - Eating disorder [Unknown]
  - Restlessness [Unknown]
  - Gastrointestinal disorder [Unknown]
  - Sleep disorder [Unknown]
  - Nausea [Unknown]
  - Abdominal pain [Unknown]
  - Asthenia [Unknown]
  - Fatigue [Unknown]
